FAERS Safety Report 5712029-1 (Version None)
Quarter: 2008Q2

REPORT INFORMATION
  Report Type: 
  Country: None (occurrence: None)
  Receive Date: 20080421
  Receipt Date: 20080421
  Transmission Date: 20081010
  Serious: Yes (Other)
  Sender: FDA-Public Use
  Company Number: None

PATIENT

DRUGS (2)
  1. NERL BLOOD BANK SALINE PH 7.0 -7.2 [Suspect]
     Indication: LABORATORY TEST
     Dates: start: 20080111, end: 20080408
  2. NERL BLOOD BANK SALINE PH 7.0 - 7.2 [Suspect]

REACTIONS (2)
  - LABORATORY TEST INTERFERENCE [None]
  - PHARMACEUTICAL PRODUCT COMPLAINT [None]
